FAERS Safety Report 17945212 (Version 4)
Quarter: 2021Q4

REPORT INFORMATION
  Report Type: Spontaneous
  Country: US (occurrence: US)
  Receive Date: 20200626
  Receipt Date: 20211223
  Transmission Date: 20220303
  Serious: Yes (Other)
  Sender: FDA-Public Use
  Company Number: US-GILEAD-2020-0475190

PATIENT
  Sex: Male
  Weight: 79.365 kg

DRUGS (33)
  1. VIREAD [Suspect]
     Active Substance: TENOFOVIR DISOPROXIL FUMARATE
     Indication: HIV infection
     Dosage: UNK
     Route: 048
     Dates: start: 2001, end: 200506
  2. TRUVADA [Suspect]
     Active Substance: EMTRICITABINE\TENOFOVIR DISOPROXIL FUMARATE
     Indication: HIV infection
     Dosage: UNK
     Route: 048
     Dates: start: 2004, end: 2005
  3. TRUVADA [Suspect]
     Active Substance: EMTRICITABINE\TENOFOVIR DISOPROXIL FUMARATE
     Dosage: UNK
     Route: 048
     Dates: start: 2007
  4. TRUVADA [Suspect]
     Active Substance: EMTRICITABINE\TENOFOVIR DISOPROXIL FUMARATE
     Dosage: UNK
     Route: 048
     Dates: start: 200802, end: 20100806
  5. TRUVADA [Suspect]
     Active Substance: EMTRICITABINE\TENOFOVIR DISOPROXIL FUMARATE
     Dosage: UNK
     Route: 048
     Dates: start: 200601, end: 2012
  6. STRIBILD [Suspect]
     Active Substance: COBICISTAT\ELVITEGRAVIR\EMTRICITABINE\TENOFOVIR DISOPROXIL FUMARATE
     Indication: HIV infection
     Route: 048
  7. GENVOYA [Concomitant]
     Active Substance: COBICISTAT\ELVITEGRAVIR\EMTRICITABINE\TENOFOVIR ALAFENAMIDE FUMARATE
  8. ACETAMINOPHEN [Concomitant]
     Active Substance: ACETAMINOPHEN
  9. BUMEX [Concomitant]
     Active Substance: BUMETANIDE
  10. OMEPRAZOLE [Concomitant]
     Active Substance: OMEPRAZOLE
  11. PENICILLIN G [Concomitant]
     Active Substance: PENICILLIN G
  12. KALETRA [Concomitant]
     Active Substance: LOPINAVIR\RITONAVIR
  13. EFAVIRENZ [Concomitant]
     Active Substance: EFAVIRENZ
  14. CEFAZOLIN [Concomitant]
     Active Substance: CEFAZOLIN
  15. FENTANYL [Concomitant]
     Active Substance: FENTANYL
  16. ROCURONIUM [Concomitant]
     Active Substance: ROCURONIUM BROMIDE
  17. PROPOFOL [Concomitant]
     Active Substance: PROPOFOL
  18. MIDAZOLAM [Concomitant]
     Active Substance: MIDAZOLAM
  19. MORPHINE [Concomitant]
     Active Substance: MORPHINE
  20. VANCOMYCIN [Concomitant]
     Active Substance: VANCOMYCIN
  21. TYLENOL WITH CODEINE [Concomitant]
     Active Substance: ACETAMINOPHEN\CODEINE PHOSPHATE
  22. AMOXICILLIN [Concomitant]
     Active Substance: AMOXICILLIN
  23. ALBUTEROL [Concomitant]
     Active Substance: ALBUTEROL
  24. GABAPENTIN [Concomitant]
     Active Substance: GABAPENTIN
  25. LISINOPRIL [Concomitant]
     Active Substance: LISINOPRIL
  26. PHENYLEPHRINE [Concomitant]
     Active Substance: PHENYLEPHRINE HYDROCHLORIDE
  27. SILDENAFIL [Concomitant]
     Active Substance: SILDENAFIL
  28. FLUTICASONE [Concomitant]
     Active Substance: FLUTICASONE
  29. VARDENAFIL [Concomitant]
     Active Substance: VARDENAFIL HYDROCHLORIDE
  30. ETRAVIRINE [Concomitant]
     Active Substance: ETRAVIRINE
  31. HYDROCHLOROTHIAZIDE [Concomitant]
     Active Substance: HYDROCHLOROTHIAZIDE
  32. RANITIDINE [Concomitant]
     Active Substance: RANITIDINE
  33. DOCUSATE [Concomitant]
     Active Substance: DOCUSATE

REACTIONS (8)
  - Renal injury [Unknown]
  - Chronic kidney disease [Unknown]
  - Renal mass [Recovered/Resolved]
  - Renal failure [Unknown]
  - Skeletal injury [Unknown]
  - Tooth loss [Unknown]
  - Depression [Unknown]
  - Nephropathy [Recovered/Resolved]

NARRATIVE: CASE EVENT DATE: 20100101
